FAERS Safety Report 10609838 (Version 1)
Quarter: 2014Q4

REPORT INFORMATION
  Report Type: Spontaneous
  Country: FR (occurrence: FR)
  Receive Date: 20141126
  Receipt Date: 20141126
  Transmission Date: 20150529
  Serious: Yes (Hospitalization, Other)
  Sender: FDA-Public Use
  Company Number: FR-ELI_LILLY_AND_COMPANY-FR201411005355

PATIENT
  Age: 46 Year
  Sex: Female

DRUGS (11)
  1. ALIMTA [Suspect]
     Active Substance: PEMETREXED DISODIUM
     Dosage: 713 MG, UNKNOWN
     Route: 042
     Dates: start: 20140205
  2. CISPLATINO EBEWE [Suspect]
     Active Substance: CISPLATIN
     Dosage: 107 MG, UNKNOWN
     Route: 042
     Dates: start: 20140205
  3. ALIMTA [Suspect]
     Active Substance: PEMETREXED DISODIUM
     Dosage: 713 MG, UNKNOWN
     Route: 042
     Dates: start: 20140430
  4. ALIMTA [Suspect]
     Active Substance: PEMETREXED DISODIUM
     Dosage: 713 MG, UNKNOWN
     Route: 042
     Dates: start: 20140409
  5. ALIMTA [Suspect]
     Active Substance: PEMETREXED DISODIUM
     Indication: PRODUCT USED FOR UNKNOWN INDICATION
     Dosage: 706 MG, UNKNOWN
     Route: 042
     Dates: start: 20140115
  6. ALIMTA [Suspect]
     Active Substance: PEMETREXED DISODIUM
     Dosage: 713 MG, UNKNOWN
     Route: 042
     Dates: start: 20140226
  7. ALIMTA [Suspect]
     Active Substance: PEMETREXED DISODIUM
     Dosage: 706 MG, UNKNOWN
     Route: 042
     Dates: start: 20140521
  8. CISPLATINO EBEWE [Suspect]
     Active Substance: CISPLATIN
     Indication: PRODUCT USED FOR UNKNOWN INDICATION
     Dosage: 106 MG, UNKNOWN
     Route: 042
     Dates: start: 20140115, end: 20140319
  9. ALIMTA [Suspect]
     Active Substance: PEMETREXED DISODIUM
     Dosage: 706 MG, UNKNOWN
     Route: 042
     Dates: start: 20140319
  10. CISPLATINO EBEWE [Suspect]
     Active Substance: CISPLATIN
     Dosage: 107 MG, UNKNOWN
     Route: 042
     Dates: start: 20140226
  11. CISPLATINO EBEWE [Suspect]
     Active Substance: CISPLATIN
     Dosage: 106 MG, UNKNOWN
     Route: 042
     Dates: start: 20140319

REACTIONS (3)
  - Renal tubular disorder [Recovering/Resolving]
  - Nephropathy toxic [Unknown]
  - Acute kidney injury [Recovering/Resolving]

NARRATIVE: CASE EVENT DATE: 20140611
